FAERS Safety Report 24805870 (Version 5)
Quarter: 2025Q3

REPORT INFORMATION
  Report Type: Spontaneous
  Country: US (occurrence: US)
  Receive Date: 20250103
  Receipt Date: 20250903
  Transmission Date: 20251021
  Serious: Yes (Hospitalization, Other)
  Sender: PFIZER
  Company Number: US-PFIZER INC-202400335219

PATIENT
  Age: 61 Year
  Sex: Male
  Weight: 80.74 kg

DRUGS (3)
  1. PROPOFOL [Suspect]
     Active Substance: PROPOFOL
     Indication: Anaesthesia
     Route: 042
     Dates: start: 20230907, end: 20230907
  2. PROPOFOL [Suspect]
     Active Substance: PROPOFOL
     Indication: Sedation
  3. PROPOFOL [Suspect]
     Active Substance: PROPOFOL
     Indication: Analgesic therapy

REACTIONS (13)
  - Dementia Alzheimer^s type [Not Recovered/Not Resolved]
  - Parkinson^s disease [Not Recovered/Not Resolved]
  - Angiopathy [Recovered/Resolved]
  - Balance disorder [Not Recovered/Not Resolved]
  - Choking [Unknown]
  - Airway complication of anaesthesia [Unknown]
  - Recalled product administered [Unknown]
  - Expired product administered [Unknown]
  - Dyspnoea [Unknown]
  - Cold sweat [Unknown]
  - Headache [Unknown]
  - Nausea [Unknown]
  - Cough [Unknown]

NARRATIVE: CASE EVENT DATE: 20230101
